FAERS Safety Report 21704162 (Version 1)
Quarter: 2022Q4

REPORT INFORMATION
  Report Type: Spontaneous
  Country: IT (occurrence: IT)
  Receive Date: 20221209
  Receipt Date: 20221209
  Transmission Date: 20230113
  Serious: Yes (Other)
  Sender: FDA-Public Use
  Company Number: None

PATIENT
  Age: 75 Year
  Sex: Male

DRUGS (6)
  1. FLUOROURACIL [Suspect]
     Active Substance: FLUOROURACIL
     Indication: Adenocarcinoma of colon
     Dosage: UNIT DOSE : 500 MG , THERAPY END DATE : NASK
     Dates: start: 20220811
  2. FLUOROURACIL [Suspect]
     Active Substance: FLUOROURACIL
     Dosage: UNIT DOSE : 3007 MG , THERAPY END DATE : NASK
     Dates: start: 20220811
  3. NIMOTOP [Concomitant]
     Active Substance: NIMODIPINE
     Indication: Product used for unknown indication
  4. LEVO FOLINIC ACID [Concomitant]
     Indication: Product used for unknown indication
     Dosage: ACIDO LEVO FOLINICO , UNIT DOSE : 257 MG
  5. CLOPIDOGREL [Concomitant]
     Active Substance: CLOPIDOGREL BISULFATE
     Indication: Product used for unknown indication
     Dosage: UNIT DOSE : 75 MG
  6. BISOPROLOL [Concomitant]
     Active Substance: BISOPROLOL
     Indication: Product used for unknown indication
     Dosage: UNIT DOSE : 1.25 MG

REACTIONS (2)
  - Hyperbilirubinaemia [Recovered/Resolved]
  - Blood creatine increased [Recovered/Resolved]

NARRATIVE: CASE EVENT DATE: 20220831
